APPROVED DRUG PRODUCT: DEXMETHYLPHENIDATE HYDROCHLORIDE
Active Ingredient: DEXMETHYLPHENIDATE HYDROCHLORIDE
Strength: 5MG
Dosage Form/Route: TABLET;ORAL
Application: A204534 | Product #002 | TE Code: AB
Applicant: NOVEL LABORATORIES INC
Approved: Dec 4, 2015 | RLD: No | RS: No | Type: RX